FAERS Safety Report 9126750 (Version 2)
Quarter: 2013Q1

REPORT INFORMATION
  Report Type: Spontaneous
  Country: US (occurrence: US)
  Receive Date: 20130122
  Receipt Date: 20130308
  Transmission Date: 20140127
  Serious: No
  Sender: FDA-Public Use
  Company Number: US-ASTRAZENECA-2011SE67125

PATIENT
  Age: 55 Year
  Sex: Male
  Weight: 69.9 kg

DRUGS (3)
  1. SYMBICORT PMDI [Suspect]
     Indication: CHRONIC OBSTRUCTIVE PULMONARY DISEASE
     Dosage: 160/4.5 MCG 1 PUFF TWO TIMES A DAY
     Route: 055
     Dates: start: 2009
  2. ZYRTEC [Concomitant]
     Indication: DERMATITIS ALLERGIC
     Dosage: AS REQUIRED
     Route: 048
  3. SIMVASTATIN [Concomitant]
     Indication: BLOOD CHOLESTEROL INCREASED
     Route: 048

REACTIONS (2)
  - Asthma [Recovering/Resolving]
  - Off label use [Recovered/Resolved]
